FAERS Safety Report 5565126-8 (Version None)
Quarter: 2007Q4

REPORT INFORMATION
  Report Type: 
  Country: None (occurrence: None)
  Receive Date: 20071218
  Receipt Date: 20071211
  Transmission Date: 20080405
  Serious: Yes (Other)
  Sender: FDA-Public Use
  Company Number: US-ROCHE-503104

PATIENT
  Age: 21 Year
  Sex: Female
  Weight: 61.2 kg

DRUGS (4)
  1. ACCUTANE [Suspect]
     Indication: ACNE
     Route: 065
     Dates: start: 19950804, end: 19960201
  2. MINOCYCLINE HCL [Concomitant]
     Indication: ACNE
     Dates: start: 19950804
  3. PREDNISONE [Concomitant]
     Indication: ACNE
     Dates: start: 19950811
  4. CEPHALEXIN [Concomitant]
     Indication: ACNE
     Dates: start: 19950811

REACTIONS (10)
  - ANAL FISSURE [None]
  - ARRHYTHMIA [None]
  - COLITIS [None]
  - COLITIS ULCERATIVE [None]
  - COLONIC POLYP [None]
  - EMOTIONAL DISORDER [None]
  - EMOTIONAL DISTRESS [None]
  - INFLAMMATORY BOWEL DISEASE [None]
  - IRRITABLE BOWEL SYNDROME [None]
  - PROCTITIS [None]
